FAERS Safety Report 9761246 (Version 2)
Quarter: 2014Q1

REPORT INFORMATION
  Report Type: Spontaneous
  Country: US (occurrence: US)
  Receive Date: 20131216
  Receipt Date: 20140224
  Transmission Date: 20141002
  Serious: Yes (Death)
  Sender: FDA-Public Use
  Company Number: US-BRISTOL-MYERS SQUIBB COMPANY-19908185

PATIENT
  Age: 54 Year
  Sex: Male

DRUGS (4)
  1. BYETTA [Suspect]
     Indication: TYPE 2 DIABETES MELLITUS
     Dosage: LAST DOSE ON SEP08
     Dates: start: 20050916, end: 201208
  2. ONGLYZA TABS [Suspect]
     Indication: TYPE 2 DIABETES MELLITUS
     Dosage: THERAPY TILL NOV11
     Dates: start: 20091218, end: 201111
  3. JANUVIA [Suspect]
     Indication: TYPE 2 DIABETES MELLITUS
     Dosage: TILL AUG12
     Dates: start: 20090716, end: 201208
  4. VICTOZA [Suspect]
     Indication: TYPE 2 DIABETES MELLITUS
     Dosage: THERAPY TILL FEB11
     Dates: start: 20101224, end: 201102

REACTIONS (1)
  - Pancreatic carcinoma [Fatal]
